FAERS Safety Report 21830458 (Version 10)
Quarter: 2024Q2

REPORT INFORMATION
  Report Type: Report from Study
  Country: CA (occurrence: CA)
  Receive Date: 20230106
  Receipt Date: 20240502
  Transmission Date: 20240716
  Serious: Yes (Hospitalization)
  Sender: FDA-Public Use
  Company Number: CA-GLAXOSMITHKLINE-CA2022AMR197641

PATIENT

DRUGS (7)
  1. BELIMUMAB [Suspect]
     Active Substance: BELIMUMAB
     Indication: Systemic lupus erythematosus
     Dosage: 10 MG/KG, MO
     Route: 042
     Dates: start: 20210528
  2. BELIMUMAB [Suspect]
     Active Substance: BELIMUMAB
     Dosage: 10 MG/KG, Q4W
  3. BELIMUMAB [Suspect]
     Active Substance: BELIMUMAB
     Indication: Systemic lupus erythematosus
     Dosage: 10 MG/KG, Q4W,INFUSION
     Route: 042
     Dates: start: 20210528
  4. BELIMUMAB [Suspect]
     Active Substance: BELIMUMAB
     Dosage: 400 MG, Q4W 20 ML VIAL LYOPHILIZED POWDER
     Route: 042
     Dates: start: 20210528
  5. BELIMUMAB [Suspect]
     Active Substance: BELIMUMAB
     Dosage: 400 MG, Q4W, 20 ML VIAL LYOPHILIZED
     Route: 042
     Dates: start: 20210528
  6. METHOTREXATE [Concomitant]
     Active Substance: METHOTREXATE
     Indication: Product used for unknown indication
     Dosage: 25 MG
     Route: 058
  7. HYDROXYCHLOROQUINE [Concomitant]
     Active Substance: HYDROXYCHLOROQUINE
     Indication: Product used for unknown indication
     Dosage: 300 MG

REACTIONS (11)
  - Gastrointestinal disorder [Recovered/Resolved]
  - Nausea [Recovered/Resolved]
  - Vomiting [Recovered/Resolved]
  - Diarrhoea [Recovered/Resolved]
  - Dehydration [Recovered/Resolved]
  - Chillblains [Unknown]
  - Pain [Unknown]
  - Weight increased [Unknown]
  - Gastroenteritis bacterial [Unknown]
  - Inappropriate schedule of product administration [Unknown]
  - Incorrect dose administered [Unknown]

NARRATIVE: CASE EVENT DATE: 20221224
